FAERS Safety Report 18337273 (Version 1)
Quarter: 2020Q4

REPORT INFORMATION
  Report Type: Spontaneous
  Country: GB (occurrence: GB)
  Receive Date: 20201002
  Receipt Date: 20201002
  Transmission Date: 20210113
  Serious: Yes (Hospitalization, Other)
  Sender: FDA-Public Use
  Company Number: GB-B.I. PHARMACEUTICALS,INC./RIDGEFIELD-2020-BI-050647

PATIENT
  Age: 53 Year
  Sex: Male
  Weight: 100 kg

DRUGS (5)
  1. NOVORAPID [Concomitant]
     Active Substance: INSULIN ASPART
     Indication: DIABETES MELLITUS
     Dosage: AS DIRECTED
     Route: 058
  2. DABIGATRAN [Concomitant]
     Active Substance: DABIGATRAN
     Indication: ATRIAL FIBRILLATION
     Route: 048
     Dates: start: 2019
  3. METFORMIN [Concomitant]
     Active Substance: METFORMIN HYDROCHLORIDE
     Indication: DIABETES MELLITUS
     Route: 048
     Dates: start: 2006, end: 2020
  4. JARDIANCE [Suspect]
     Active Substance: EMPAGLIFLOZIN
     Indication: DIABETES MELLITUS
     Route: 048
  5. LEVEMIR [Concomitant]
     Active Substance: INSULIN DETEMIR
     Indication: DIABETES MELLITUS
     Route: 058

REACTIONS (2)
  - Sinusitis [Recovered/Resolved]
  - Diabetic ketoacidosis [Recovered/Resolved]

NARRATIVE: CASE EVENT DATE: 20200714
